FAERS Safety Report 18741107 (Version 1)
Quarter: 2021Q1

REPORT INFORMATION
  Report Type: Spontaneous
  Country: US (occurrence: US)
  Receive Date: 20210114
  Receipt Date: 20210114
  Transmission Date: 20210419
  Serious: No
  Sender: FDA-Public Use
  Company Number: US-CHIASMA-2020CHI00056

PATIENT
  Age: 53 Year
  Sex: Female

DRUGS (2)
  1. MYCAPSSA [Suspect]
     Active Substance: OCTREOTIDE
     Dosage: 20 MG, EVERY 48 HOURS FOR 2 WEEKS
     Route: 048
     Dates: start: 202012
  2. MYCAPSSA [Suspect]
     Active Substance: OCTREOTIDE
     Dosage: 20 MG, 2X/DAY
     Route: 048
     Dates: start: 2020, end: 202012

REACTIONS (1)
  - Headache [Recovered/Resolved]

NARRATIVE: CASE EVENT DATE: 2020
